FAERS Safety Report 7644689-2 (Version None)
Quarter: 2011Q3

REPORT INFORMATION
  Report Type: 
  Country: None (occurrence: None)
  Receive Date: 20110729
  Receipt Date: 20110720
  Transmission Date: 20111222
  Serious: Yes (Hospitalization)
  Sender: FDA-Public Use
  Company Number: PHHY2011CH65534

PATIENT
  Sex: Male

DRUGS (6)
  1. LYRICA [Concomitant]
     Dosage: UNK
     Route: 048
  2. MINOCYCLINE HCL [Concomitant]
     Indication: STAPHYLOCOCCAL INFECTION
     Dosage: UNK
     Route: 048
     Dates: start: 20110501, end: 20110601
  3. VALPROIC ACID [Interacting]
     Indication: EPILEPSY
     Dosage: 1000 MG, BID
     Route: 048
  4. RIFAMPICIN [Suspect]
     Indication: STAPHYLOCOCCAL INFECTION
     Dosage: 450 MG, BID
     Route: 048
     Dates: start: 20110501, end: 20110601
  5. ASPIRIN [Concomitant]
     Dosage: UNK
     Route: 048
  6. SEROQUEL [Concomitant]
     Dosage: UNK
     Route: 048

REACTIONS (4)
  - EPILEPSY [None]
  - DRUG INTERACTION [None]
  - INJURY [None]
  - DRUG LEVEL DECREASED [None]
